FAERS Safety Report 11283834 (Version 1)
Quarter: 2015Q3

REPORT INFORMATION
  Report Type: Spontaneous
  Country: GB (occurrence: GB)
  Receive Date: 20150720
  Receipt Date: 20150720
  Transmission Date: 20151125
  Serious: Yes (Disabling, Other)
  Sender: FDA-Public Use
  Company Number: GB-PFIZER INC-2015237426

PATIENT
  Age: 60 Year
  Sex: Male
  Weight: 80 kg

DRUGS (5)
  1. ATORVASTATIN CALCIUM. [Suspect]
     Active Substance: ATORVASTATIN CALCIUM
     Dosage: 10 MG, UNK
     Route: 048
  2. ATENOLOL. [Concomitant]
     Active Substance: ATENOLOL
     Dosage: 25 MG, UNK
     Dates: start: 20050701
  3. ASPIRIN COATED [Concomitant]
     Dosage: UNK
     Dates: start: 20050701, end: 20140701
  4. ATORVASTATIN CALCIUM. [Suspect]
     Active Substance: ATORVASTATIN CALCIUM
     Indication: BLOOD CHOLESTEROL INCREASED
     Dosage: 40 MG, UNK
     Route: 048
     Dates: start: 20050701
  5. ATORVASTATIN CALCIUM. [Suspect]
     Active Substance: ATORVASTATIN CALCIUM
     Dosage: 20 MG, UNK
     Route: 048

REACTIONS (11)
  - Vitreous detachment [Unknown]
  - Muscle tightness [Unknown]
  - Back pain [Unknown]
  - Epicondylitis [Recovered/Resolved]
  - Arthralgia [Recovered/Resolved]
  - Periarthritis [Recovered/Resolved with Sequelae]
  - Muscle spasms [Recovering/Resolving]
  - Insomnia [Unknown]
  - Retinopathy [Unknown]
  - Asthenia [Unknown]
  - Cataract [Unknown]

NARRATIVE: CASE EVENT DATE: 200710
